FAERS Safety Report 5748163-X (Version None)
Quarter: 2008Q2

REPORT INFORMATION
  Report Type: 
  Country: None (occurrence: None)
  Receive Date: 20080523
  Receipt Date: 20080425
  Transmission Date: 20081010
  Serious: No
  Sender: FDA-Public Use
  Company Number: US-BOEHRINGER INGELHEIM GMBH, GERMANY-2008-BP-06536BP

PATIENT
  Sex: Male

DRUGS (7)
  1. FLOMAX [Suspect]
     Indication: BENIGN PROSTATIC HYPERPLASIA
     Route: 048
     Dates: start: 20000101
  2. FUROSEMIDE [Concomitant]
     Indication: CARDIAC FAILURE CONGESTIVE
  3. METOPROLOL TARTRATE [Concomitant]
     Indication: HYPERTENSION
  4. WARFARIN SODIUM [Concomitant]
     Indication: ATRIAL FIBRILLATION
  5. AVAPRO [Concomitant]
  6. ALLOPURINOL [Concomitant]
     Indication: GOUT
  7. NABUTONE [Concomitant]
     Indication: ARTHRITIS

REACTIONS (2)
  - URINARY RETENTION [None]
  - URINARY TRACT INFECTION [None]
